FAERS Safety Report 15231267 (Version 1)
Quarter: 2018Q3

REPORT INFORMATION
  Report Type: Spontaneous
  Country: US (occurrence: US)
  Receive Date: 20180802
  Receipt Date: 20180802
  Transmission Date: 20181010
  Serious: Yes (Other)
  Sender: FDA-Public Use
  Company Number: US-MYLANLABS-2018M1057161

PATIENT
  Age: 72 Year
  Sex: Female

DRUGS (1)
  1. DOXORUBICIN [Suspect]
     Active Substance: DOXORUBICIN
     Indication: TRANSITIONAL CELL CARCINOMA
     Route: 065

REACTIONS (7)
  - Hypocalcaemia [Not Recovered/Not Resolved]
  - Nausea [Unknown]
  - Hyperparathyroidism secondary [Unknown]
  - Fatigue [Unknown]
  - Pancytopenia [Unknown]
  - Diarrhoea [Unknown]
  - Adult failure to thrive [Unknown]
